FAERS Safety Report 14980091 (Version 1)
Quarter: 2018Q2

REPORT INFORMATION
  Report Type: Spontaneous
  Country: US (occurrence: US)
  Receive Date: 20180515
  Receipt Date: 20180515
  Transmission Date: 20180711
  Serious: Yes (Hospitalization)
  Sender: FDA-Public Use
  Company Number: None

PATIENT
  Age: 70 Year
  Sex: Male
  Weight: 115.6 kg

DRUGS (20)
  1. OXYCODONE [Concomitant]
     Active Substance: OXYCODONE
  2. MIRALAX [Concomitant]
     Active Substance: POLYETHYLENE GLYCOL 3350
  3. KEFLEX [Concomitant]
     Active Substance: CEPHALEXIN
  4. 5-FU [Suspect]
     Active Substance: FLUOROURACIL
     Dosage: ?          OTHER FREQUENCY:5DAY/WEEK;OTHER ROUTE:IV PUMP?
  5. INSULIN (LANTUS) [Concomitant]
  6. LAMISIL [Concomitant]
     Active Substance: TERBINAFINE HYDROCHLORIDE
  7. ZOCOR [Concomitant]
     Active Substance: SIMVASTATIN
  8. COUMADIN [Concomitant]
     Active Substance: WARFARIN SODIUM
  9. GCSF [Concomitant]
     Active Substance: UNSPECIFIED INGREDIENT
  10. TRIAMCINOLONE ACETONIDE. [Concomitant]
     Active Substance: TRIAMCINOLONE ACETONIDE
  11. NAB-PACLITAXEL [Suspect]
     Active Substance: PACLITAXEL
     Indication: PANCREATIC CARCINOMA
     Dosage: ?          OTHER FREQUENCY:28DAYCYCLE;?
     Route: 042
     Dates: start: 20180109, end: 20180202
  12. METFRORMIN [Concomitant]
  13. LOPRESSOR [Concomitant]
     Active Substance: METOPROLOL TARTRATE
  14. GEMCITABINE [Suspect]
     Active Substance: GEMCITABINE\GEMCITABINE HYDROCHLORIDE
     Indication: PANCREATIC CARCINOMA
     Dosage: ?          OTHER FREQUENCY:28DAYCYCLE;?
     Route: 042
     Dates: start: 20171023, end: 20171212
  15. CHEMORADIATION [Suspect]
     Active Substance: UNSPECIFIED INGREDIENT
     Dosage: ?          OTHER FREQUENCY:5DAY/WEEK;OTHER ROUTE:EXTERNAL BEAM?
  16. LISINOPRIL. [Concomitant]
     Active Substance: LISINOPRIL
  17. PRILOSEC [Concomitant]
     Active Substance: OMEPRAZOLE MAGNESIUM
  18. CIPRO [Concomitant]
     Active Substance: CIPROFLOXACIN HYDROCHLORIDE
  19. INSULIN (NOVOLOG) [Concomitant]
  20. CLARITIN [Concomitant]
     Active Substance: LORATADINE

REACTIONS (3)
  - Pain [None]
  - Ileus [None]
  - Nausea [None]

NARRATIVE: CASE EVENT DATE: 20180510
